FAERS Safety Report 15779146 (Version 1)
Quarter: 2019Q1

REPORT INFORMATION
  Report Type: Spontaneous
  Country: US (occurrence: US)
  Receive Date: 20190101
  Receipt Date: 20190101
  Transmission Date: 20190417
  Serious: No
  Sender: FDA-Public Use
  Company Number: US-ALEMBIC PHARMACUETICALS LIMITED-2018SCAL000972

PATIENT

DRUGS (4)
  1. ATORVASTATIN [Concomitant]
     Active Substance: ATORVASTATIN
     Indication: BLOOD CHOLESTEROL INCREASED
     Dosage: UNK
  2. VALSARTAN. [Suspect]
     Active Substance: VALSARTAN
     Indication: HYPERTENSION
     Dosage: 80 MG, OD
     Route: 048
     Dates: start: 20181211, end: 20181217
  3. VALSARTAN. [Suspect]
     Active Substance: VALSARTAN
     Dosage: HALF MEDICATION IN MORING AND ANOTHER IN EVENING
     Dates: start: 20181214
  4. METFORMIN [Concomitant]
     Active Substance: METFORMIN HYDROCHLORIDE
     Indication: DIABETES MELLITUS
     Dosage: UNK

REACTIONS (5)
  - Dizziness [Recovered/Resolved]
  - Anger [Recovered/Resolved]
  - Wrong technique in product usage process [Unknown]
  - Product substitution issue [Unknown]
  - Agitation [Recovered/Resolved]

NARRATIVE: CASE EVENT DATE: 20181212
